FAERS Safety Report 9918082 (Version 1)
Quarter: 2014Q1

REPORT INFORMATION
  Report Type: Spontaneous
  Country: US (occurrence: US)
  Receive Date: 20140223
  Receipt Date: 20140223
  Transmission Date: 20141002
  Serious: No
  Sender: FDA-Public Use
  Company Number: US-ALLERGAN-1310898US

PATIENT
  Age: 16 Year
  Sex: Male

DRUGS (3)
  1. TAZORAC CREAM 0.1% [Suspect]
     Indication: ACNE
     Route: 061
  2. CLINDAMYCIN [Concomitant]
     Indication: ACNE
  3. BENZOIL PEROXIDE GEL [Concomitant]
     Indication: ACNE

REACTIONS (1)
  - Therapeutic response decreased [Unknown]
